FAERS Safety Report 14232994 (Version 1)
Quarter: 2017Q4

REPORT INFORMATION
  Report Type: Spontaneous
  Country: US (occurrence: US)
  Receive Date: 20171128
  Receipt Date: 20171128
  Transmission Date: 20180321
  Serious: No
  Sender: FDA-Public Use
  Company Number: US-LEADIANT BIOSCIENCES INC-2017STPI000089

PATIENT
  Age: 45 Year
  Sex: Male

DRUGS (11)
  1. ZESTRIL [Concomitant]
     Active Substance: LISINOPRIL
  2. TESSALON [Concomitant]
     Active Substance: BENZONATATE
  3. MATULANE [Suspect]
     Active Substance: PROCARBAZINE HYDROCHLORIDE
     Indication: BRAIN NEOPLASM MALIGNANT
     Dosage: 100 MG, OTHER
     Route: 048
     Dates: start: 20160401, end: 20170208
  4. LYRICA [Concomitant]
     Active Substance: PREGABALIN
  5. LEVAQUIN [Concomitant]
     Active Substance: LEVOFLOXACIN
  6. NEURONTIN [Concomitant]
     Active Substance: GABAPENTIN
  7. HUMALOG [Concomitant]
     Active Substance: INSULIN LISPRO
  8. AMBIEN [Concomitant]
     Active Substance: ZOLPIDEM TARTRATE
  9. TRESIBA [Concomitant]
     Active Substance: INSULIN DEGLUDEC
  10. CRESTOR [Concomitant]
     Active Substance: ROSUVASTATIN CALCIUM
  11. KEPPRA [Concomitant]
     Active Substance: LEVETIRACETAM

REACTIONS (2)
  - White blood cell count decreased [Unknown]
  - Influenza [Unknown]

NARRATIVE: CASE EVENT DATE: 20170208
